FAERS Safety Report 5264965-0 (Version None)
Quarter: 2007Q1

REPORT INFORMATION
  Report Type: 
  Country: None (occurrence: None)
  Receive Date: 20061122
  Receipt Date: 20060822
  Transmission Date: 20070707
  Serious: Yes (Other)
  Sender: FDA-Public Use
  Company Number: US-JNJFOC-20060805493

PATIENT
  Age: 33 Hour
  Sex: Male
  Weight: 70.3075 kg

DRUGS (6)
  1. RISPERDAL CONSTA [Suspect]
     Indication: BIPOLAR DISORDER
     Dosage: SEE IMAGE
     Route: 030
     Dates: start: 20050101, end: 20060701
  2. RISPERDAL CONSTA [Suspect]
     Indication: BIPOLAR DISORDER
     Dosage: SEE IMAGE
     Route: 030
     Dates: start: 20060701, end: 20060821
  3. RISPERDAL CONSTA [Suspect]
     Indication: BIPOLAR DISORDER
     Dosage: SEE IMAGE
     Route: 030
     Dates: start: 20060821
  4. LAMICTAL [Concomitant]
  5. XANAX [Concomitant]
  6. LOPRESSOR [Concomitant]

REACTIONS (8)
  - BIPOLAR DISORDER [None]
  - BLOOD GLUCOSE INCREASED [None]
  - CHEST DISCOMFORT [None]
  - HEADACHE [None]
  - HEART RATE INCREASED [None]
  - HYPERTENSION [None]
  - PALPITATIONS [None]
  - PANIC ATTACK [None]
